FAERS Safety Report 19005197 (Version 1)
Quarter: 2021Q1

REPORT INFORMATION
  Report Type: Spontaneous
  Country: US (occurrence: US)
  Receive Date: 20210313
  Receipt Date: 20210313
  Transmission Date: 20210420
  Serious: Yes (Hospitalization, Other)
  Sender: FDA-Public Use
  Company Number: US-EPICPHARMA-US-2021EPCLIT00244

PATIENT
  Age: 68 Year
  Sex: Female

DRUGS (9)
  1. GABAPENTIN. [Suspect]
     Active Substance: GABAPENTIN
     Indication: ANTIDEPRESSANT THERAPY
     Route: 048
  2. MIRTAZAPINE. [Suspect]
     Active Substance: MIRTAZAPINE
     Indication: ANTIDEPRESSANT THERAPY
     Route: 048
  3. ONDANSETRON [Interacting]
     Active Substance: ONDANSETRON
     Indication: DIABETIC KETOACIDOSIS
     Route: 042
  4. DULOXETINE. [Suspect]
     Active Substance: DULOXETINE
     Indication: ANTIDEPRESSANT THERAPY
     Route: 048
  5. DEXTROMETHORPHAN;GUAIFENESIN [Suspect]
     Active Substance: DEXTROMETHORPHAN\GUAIFENESIN
     Indication: UPPER RESPIRATORY TRACT INFECTION
     Route: 065
  6. NORMAL SALINE [Interacting]
     Active Substance: SODIUM CHLORIDE
     Indication: DIABETIC KETOACIDOSIS
     Route: 065
  7. LAMOTRIGINE. [Suspect]
     Active Substance: LAMOTRIGINE
     Indication: ANTIDEPRESSANT THERAPY
     Route: 048
  8. TRAZODONE [Suspect]
     Active Substance: TRAZODONE HYDROCHLORIDE
     Indication: ANTIDEPRESSANT THERAPY
     Route: 048
  9. TRAMADOL. [Suspect]
     Active Substance: TRAMADOL
     Indication: PAIN
     Route: 048

REACTIONS (1)
  - Serotonin syndrome [Recovered/Resolved]
